FAERS Safety Report 8849004 (Version 2)
Quarter: 2012Q4

REPORT INFORMATION
  Report Type: 
  Country: US (occurrence: US)
  Receive Date: 20121019
  Receipt Date: 20121213
  Transmission Date: 20130627
  Serious: No
  Sender: FDA-Public Use
  Company Number: US-ELI_LILLY_AND_COMPANY-US201210002837

PATIENT
  Sex: Female
  Weight: 79.37 kg

DRUGS (5)
  1. FLUOXETINE HYDROCHLORIDE [Suspect]
     Indication: DEPRESSION
     Dosage: 1 DF, unknown
     Dates: end: 1987
  2. EFFEXOR XR [Concomitant]
     Indication: DEPRESSION
     Dosage: 375 mg, qd
     Route: 048
  3. PAMELOR [Concomitant]
     Indication: DEPRESSION
     Dosage: 1 DF, unknown
  4. SERTRALINE [Concomitant]
     Indication: DEPRESSION
     Dosage: 1 DF, unknown
  5. PACLITAXEL [Concomitant]
     Indication: DEPRESSION
     Dosage: 1 DF, unknown

REACTIONS (2)
  - Diabetes mellitus [Unknown]
  - Drug ineffective [Unknown]
